FAERS Safety Report 4594486-X (Version None)
Quarter: 2005Q1

REPORT INFORMATION
  Report Type: 
  Country: None (occurrence: None)
  Receive Date: 20050301
  Receipt Date: 20040322
  Transmission Date: 20050727
  Serious: No
  Sender: FDA-Public Use
  Company Number: US-GLAXOSMITHKLINE-A0504534A

PATIENT
  Age: 82 Year
  Sex: Female

DRUGS (3)
  1. VALTREX [Suspect]
     Dosage: 1G THREE TIMES PER DAY
     Route: 048
     Dates: start: 20040311, end: 20040312
  2. NEURONTIN [Concomitant]
     Indication: PAIN
     Dosage: 300MG TWICE PER DAY
     Route: 048
     Dates: start: 20040311, end: 20040312
  3. VICODIN [Concomitant]
     Indication: PAIN
     Route: 048
     Dates: start: 20040311, end: 20040312

REACTIONS (4)
  - DIARRHOEA [None]
  - DIZZINESS [None]
  - HEADACHE [None]
  - NAUSEA [None]
